FAERS Safety Report 12974500 (Version 1)
Quarter: 2016Q4

REPORT INFORMATION
  Report Type: Spontaneous
  Country: FR (occurrence: FR)
  Receive Date: 20161125
  Receipt Date: 20161125
  Transmission Date: 20170207
  Serious: Yes (Life-Threatening, Hospitalization)
  Sender: FDA-Public Use
  Company Number: FR-ACCORD-045818

PATIENT
  Age: 72 Year
  Sex: Female
  Weight: 65 kg

DRUGS (12)
  1. PLITICAN [Suspect]
     Active Substance: ALIZAPRIDE HYDROCHLORIDE
     Indication: NAUSEA
     Route: 042
     Dates: start: 20161017, end: 20161020
  2. POLARAMINE [Concomitant]
     Active Substance: DEXCHLORPHENIRAMINE MALEATE
  3. CARBOPLATIN. [Concomitant]
     Active Substance: CARBOPLATIN
     Indication: OVARIAN CANCER
  4. FERINJECT [Concomitant]
     Active Substance: FERRIC CARBOXYMALTOSE
  5. FILGRASTIM/GRANULOCYTE COLONY STIMULATING/LENOGRASTIM [Concomitant]
  6. METHYLPREDNISONE [Concomitant]
     Active Substance: METHYLPREDNISOLONE
  7. FOLINIC ACID [Concomitant]
     Active Substance: LEUCOVORIN
  8. PYRIDOXINE [Concomitant]
     Active Substance: PYRIDOXINE
  9. FLUOROURACILE ACCORD [Suspect]
     Active Substance: FLUOROURACIL
     Indication: OVARIAN CANCER
     Route: 042
     Dates: start: 20161017, end: 20161020
  10. ZOPHREN [Suspect]
     Active Substance: ONDANSETRON
     Indication: NAUSEA
     Route: 040
     Dates: start: 20161017
  11. PACLITAXEL/PACLITAXEL LIPOSOME [Concomitant]
     Indication: OVARIAN CANCER
  12. RANITIDINE. [Concomitant]
     Active Substance: RANITIDINE

REACTIONS (2)
  - Cardio-respiratory arrest [Recovered/Resolved]
  - Ventricular fibrillation [Recovered/Resolved]

NARRATIVE: CASE EVENT DATE: 20161020
